FAERS Safety Report 20651889 (Version 3)
Quarter: 2022Q2

REPORT INFORMATION
  Report Type: Other
  Country: US (occurrence: None)
  Receive Date: 20220330
  Receipt Date: 20220408
  Transmission Date: 20220721
  Serious: Yes (Death)
  Sender: FDA-Public Use
  Company Number: US-ROCHE-3059110

PATIENT
  Sex: Female

DRUGS (1)
  1. OCREVUS [Suspect]
     Active Substance: OCRELIZUMAB
     Indication: Relapsing-remitting multiple sclerosis
     Dosage: DATE OF TREATMENT: 12/MAY/2021, 29/OCT/2021
     Route: 065
     Dates: start: 20181023

REACTIONS (2)
  - COVID-19 pneumonia [Fatal]
  - Acute respiratory failure [Fatal]
